FAERS Safety Report 7258505-4 (Version None)
Quarter: 2011Q1

REPORT INFORMATION
  Report Type: 
  Country: None (occurrence: None)
  Receive Date: 20110129
  Receipt Date: 20100816
  Transmission Date: 20110831
  Serious: No
  Sender: FDA-Public Use
  Company Number: US-ABBOTT-10P-163-0647793-00

PATIENT
  Age: 41 Year
  Sex: Female

DRUGS (15)
  1. FOLIC ACID [Concomitant]
     Indication: PROPHYLAXIS
  2. ZOLOFT [Concomitant]
     Indication: DEPRESSION
  3. ALBUTEROL [Concomitant]
     Indication: ASTHMA
     Route: 055
  4. MULTI-VITAMIN [Concomitant]
     Indication: PRODUCT USED FOR UNKNOWN INDICATION
  5. GABAPENTIN [Concomitant]
     Indication: PRODUCT USED FOR UNKNOWN INDICATION
     Dosage: UP TO 600
  6. HUMIRA [Suspect]
     Indication: RHEUMATOID ARTHRITIS
     Dates: start: 20100511
  7. ZOLOFT [Concomitant]
     Indication: ANXIETY
  8. METHOTREXATE [Concomitant]
     Indication: PRODUCT USED FOR UNKNOWN INDICATION
  9. SINGULAIR [Concomitant]
     Indication: ASTHMA
  10. LEVOXYL [Concomitant]
     Indication: THYROID DISORDER
  11. PRAVASTATIN [Concomitant]
     Indication: CARDIOVASCULAR EVENT PROPHYLAXIS
  12. IBUPROFEN [Concomitant]
     Indication: PAIN
  13. YAZ [Concomitant]
     Indication: CONTRACEPTION
  14. LOVAZA [Concomitant]
     Indication: PRODUCT USED FOR UNKNOWN INDICATION
  15. ADVAIR [Concomitant]
     Indication: ASTHMA
     Route: 055

REACTIONS (9)
  - RASH MACULAR [None]
  - INJECTION SITE PRURITUS [None]
  - INJECTION SITE PAPULE [None]
  - INJECTION SITE RASH [None]
  - INJECTION SITE DISCOLOURATION [None]
  - INJECTION SITE MACULE [None]
  - MALAISE [None]
  - INJECTION SITE URTICARIA [None]
  - INJECTION SITE WARMTH [None]
